FAERS Safety Report 18007792 (Version 2)
Quarter: 2021Q1

REPORT INFORMATION
  Report Type: Spontaneous
  Country: US (occurrence: US)
  Receive Date: 20200710
  Receipt Date: 20210204
  Transmission Date: 20210419
  Serious: Yes (Other)
  Sender: FDA-Public Use
  Company Number: US-ASTRAZENECA-2020SE84327

PATIENT
  Age: 693 Month
  Sex: Male
  Weight: 86.2 kg

DRUGS (64)
  1. PRILOSEC [Suspect]
     Active Substance: OMEPRAZOLE MAGNESIUM
     Indication: DYSPEPSIA
     Dosage: 20.0MG UNKNOWN
     Route: 048
     Dates: start: 200901, end: 201601
  2. LISINOPRIL. [Concomitant]
     Active Substance: LISINOPRIL
     Indication: ANGIOTENSIN CONVERTING ENZYME INHIBITOR FOETOPATHY
  3. ASPIRIN. [Concomitant]
     Active Substance: ASPIRIN
     Indication: CEREBROVASCULAR ACCIDENT
  4. FERROUS SULFATE. [Concomitant]
     Active Substance: FERROUS SULFATE
  5. MANNITOL. [Concomitant]
     Active Substance: MANNITOL
  6. SILVADENE [Concomitant]
     Active Substance: SILVER SULFADIAZINE
  7. NOREPINEPHRINE. [Concomitant]
     Active Substance: NOREPINEPHRINE
  8. ERYTHROMYCIN. [Concomitant]
     Active Substance: ERYTHROMYCIN
  9. TUMS [Concomitant]
     Active Substance: CALCIUM CARBONATE
  10. LEVEMIR [Concomitant]
     Active Substance: INSULIN DETEMIR
  11. MULTIVITAMINS [Concomitant]
     Active Substance: VITAMINS
  12. OXYCODONE [Concomitant]
     Active Substance: OXYCODONE
  13. CARVEDILOL. [Concomitant]
     Active Substance: CARVEDILOL
  14. KETAMINE [Concomitant]
     Active Substance: KETAMINE
  15. SODIUM BICARBONATE. [Concomitant]
     Active Substance: SODIUM BICARBONATE
  16. MILK OF MAGNESIA [Concomitant]
     Active Substance: MAGNESIUM HYDROXIDE
  17. KAYEXALATE [Concomitant]
     Active Substance: SODIUM POLYSTYRENE SULFONATE
  18. RIFAMPIN. [Concomitant]
     Active Substance: RIFAMPIN
  19. PRILOSEC [Suspect]
     Active Substance: OMEPRAZOLE MAGNESIUM
     Indication: GASTROOESOPHAGEAL REFLUX DISEASE
     Dosage: 20.0MG UNKNOWN
     Route: 048
     Dates: start: 200901, end: 201601
  20. VANCOMYCIN [Concomitant]
     Active Substance: VANCOMYCIN
     Indication: CHRONIC KIDNEY DISEASE
  21. AMOXICILLIN. [Concomitant]
     Active Substance: AMOXICILLIN
  22. GABAPENTIN. [Concomitant]
     Active Substance: GABAPENTIN
  23. PNEUMOVAX 23 [Concomitant]
     Active Substance: PNEUMOCOCCAL VACCINE, POLYVALENT 23
  24. CEFEPIME [Concomitant]
     Active Substance: CEFEPIME HYDROCHLORIDE
  25. FLAGYL [Concomitant]
     Active Substance: METRONIDAZOLE\METRONIDAZOLE HYDROCHLORIDE
  26. DOXYCYCLINE HYCLATE. [Concomitant]
     Active Substance: DOXYCYCLINE HYCLATE
  27. CALCIUM GLUCONATE. [Concomitant]
     Active Substance: CALCIUM GLUCONATE
  28. DEXTROSE. [Concomitant]
     Active Substance: DEXTROSE
  29. OXACILLIN [Concomitant]
     Active Substance: OXACILLIN SODIUM
  30. HYDROMORPHONE [Concomitant]
     Active Substance: HYDROMORPHONE
  31. PRILOSEC OTC [Suspect]
     Active Substance: OMEPRAZOLE MAGNESIUM
     Indication: GASTROOESOPHAGEAL REFLUX DISEASE
     Dosage: 20.0MG UNKNOWN
     Route: 048
     Dates: start: 200901, end: 201601
  32. VITAMIN D3 [Concomitant]
     Active Substance: CHOLECALCIFEROL
     Indication: GENERAL PHYSICAL CONDITION
  33. PERCOCET [Concomitant]
     Active Substance: ACETAMINOPHEN\OXYCODONE HYDROCHLORIDE
  34. PENICILLIN [Concomitant]
     Active Substance: PENICILLIN
  35. FENTANYL. [Concomitant]
     Active Substance: FENTANYL
  36. HEPARIN [Concomitant]
     Active Substance: HEPARIN SODIUM
  37. LIDOCAINE. [Concomitant]
     Active Substance: LIDOCAINE
  38. STATIN [Concomitant]
     Active Substance: UNSPECIFIED INGREDIENT
  39. LINEZOLID. [Concomitant]
     Active Substance: LINEZOLID
  40. LAMOTRIGINE. [Concomitant]
     Active Substance: LAMOTRIGINE
  41. PRILOSEC [Suspect]
     Active Substance: OMEPRAZOLE MAGNESIUM
     Indication: DYSPEPSIA
     Route: 048
     Dates: start: 200901, end: 201612
  42. PRILOSEC OTC [Suspect]
     Active Substance: OMEPRAZOLE MAGNESIUM
     Indication: GASTROOESOPHAGEAL REFLUX DISEASE
     Route: 048
     Dates: start: 200901, end: 201612
  43. NOVOLOG [Concomitant]
     Active Substance: INSULIN ASPART
  44. CIPROFLOXACIN. [Concomitant]
     Active Substance: CIPROFLOXACIN
  45. HYDROXYZINE HYDROCHLORIDE. [Concomitant]
     Active Substance: HYDROXYZINE HYDROCHLORIDE
  46. BISACODYL. [Concomitant]
     Active Substance: BISACODYL
  47. SODIUM CHLORIDE. [Concomitant]
     Active Substance: SODIUM CHLORIDE
  48. PRILOSEC [Suspect]
     Active Substance: OMEPRAZOLE MAGNESIUM
     Indication: GASTROOESOPHAGEAL REFLUX DISEASE
     Route: 048
     Dates: start: 200901, end: 201612
  49. PRILOSEC OTC [Suspect]
     Active Substance: OMEPRAZOLE MAGNESIUM
     Indication: DYSPEPSIA
     Route: 048
     Dates: start: 200901, end: 201612
  50. ACETAMINOPHEN. [Concomitant]
     Active Substance: ACETAMINOPHEN
     Indication: PAIN
  51. RENVELA [Concomitant]
     Active Substance: SEVELAMER CARBONATE
  52. ZOFRAN [Concomitant]
     Active Substance: ONDANSETRON HYDROCHLORIDE
  53. COLACE [Concomitant]
     Active Substance: DOCUSATE SODIUM
  54. PROPOFOL. [Concomitant]
     Active Substance: PROPOFOL
  55. AUGMENTIN [Concomitant]
     Active Substance: AMOXICILLIN\CLAVULANATE POTASSIUM
  56. TAMSULOSIN [Concomitant]
     Active Substance: TAMSULOSIN
  57. ALBUTEROL. [Concomitant]
     Active Substance: ALBUTEROL
  58. PRILOSEC OTC [Suspect]
     Active Substance: OMEPRAZOLE MAGNESIUM
     Indication: DYSPEPSIA
     Dosage: 20.0MG UNKNOWN
     Route: 048
     Dates: start: 200901, end: 201601
  59. PEPTO?BISMOL [Concomitant]
     Active Substance: BISMUTH SUBSALICYLATE
  60. MINOCYCLINE [Concomitant]
     Active Substance: MINOCYCLINE HYDROCHLORIDE
  61. LYRICA [Concomitant]
     Active Substance: PREGABALIN
  62. METOPROLOL SUCCINATE. [Concomitant]
     Active Substance: METOPROLOL SUCCINATE
  63. ATORVASTATIN [Concomitant]
     Active Substance: ATORVASTATIN
  64. PERIDEX [Concomitant]
     Active Substance: CHLORHEXIDINE GLUCONATE

REACTIONS (5)
  - Nephrogenic anaemia [Unknown]
  - Chronic kidney disease [Not Recovered/Not Resolved]
  - End stage renal disease [Unknown]
  - Acute kidney injury [Not Recovered/Not Resolved]
  - Renal failure [Not Recovered/Not Resolved]

NARRATIVE: CASE EVENT DATE: 201707
